FAERS Safety Report 19446884 (Version 1)
Quarter: 2021Q2

REPORT INFORMATION
  Report Type: Spontaneous
  Country: US (occurrence: US)
  Receive Date: 20210619
  Receipt Date: 20210619
  Transmission Date: 20210717
  Serious: Yes (Death, Hospitalization)
  Sender: FDA-Public Use
  Company Number: None

PATIENT
  Age: 24 Year
  Sex: Male
  Weight: 96.2 kg

DRUGS (5)
  1. DAUNORUBICIN [Suspect]
     Active Substance: DAUNORUBICIN
     Dates: end: 20210610
  2. VINCRISTINE SULFATE. [Suspect]
     Active Substance: VINCRISTINE SULFATE
     Dates: end: 20210610
  3. ONCASPAR [Suspect]
     Active Substance: PEGASPARGASE
     Dates: end: 20210530
  4. CYTARABINE. [Suspect]
     Active Substance: CYTARABINE
     Dates: end: 20210527
  5. DEXAMETHASONE. [Suspect]
     Active Substance: DEXAMETHASONE
     Dates: end: 20210614

REACTIONS (11)
  - Pulseless electrical activity [None]
  - Acidosis [None]
  - Accidental overdose [None]
  - Oedematous pancreatitis [None]
  - Blood triglycerides increased [None]
  - Unresponsive to stimuli [None]
  - Cardiac arrest [None]
  - Pancreatitis acute [None]
  - Disseminated intravascular coagulation [None]
  - Hyperkalaemia [None]
  - Ventricular fibrillation [None]

NARRATIVE: CASE EVENT DATE: 20210614
